FAERS Safety Report 20843784 (Version 2)
Quarter: 2023Q1

REPORT INFORMATION
  Report Type: Spontaneous
  Country: IN (occurrence: IN)
  Receive Date: 20220518
  Receipt Date: 20230130
  Transmission Date: 20230418
  Serious: Yes (Other)
  Sender: FDA-Public Use
  Company Number: IN-PFIZER INC-202200664153

PATIENT
  Age: 77 Year
  Sex: Female

DRUGS (7)
  1. PALBOCICLIB [Suspect]
     Active Substance: PALBOCICLIB
     Dosage: 125 MG, 1X/DAY
     Route: 048
     Dates: start: 20210722
  2. LETROZOLE [Concomitant]
     Active Substance: LETROZOLE
     Dosage: 2.5 MG, DAILY 1/12
  3. SHELCAL [CALCIUM CARBONATE;COLECALCIFEROL] [Concomitant]
     Dosage: UNK, DAILY 1/12
  4. PANTOPRAZOLE [Concomitant]
     Active Substance: PANTOPRAZOLE
     Dosage: 40 MG, DAILY (1-0-0 X 1/12)
  5. ETORICOXIB AB [Concomitant]
     Dosage: 60MG (1-0-1)
  6. PIROXICAM [Concomitant]
     Active Substance: PIROXICAM
     Dosage: 650 MG, (1-1-1 X 5D)
  7. MONTEK LC [Concomitant]
     Dosage: UNK, (0-0-1 )

REACTIONS (1)
  - Dyspnoea [Unknown]
